FAERS Safety Report 20092184 (Version 4)
Quarter: 2021Q4

REPORT INFORMATION
  Report Type: Spontaneous
  Country: US (occurrence: US)
  Receive Date: 20211119
  Receipt Date: 20211217
  Transmission Date: 20220303
  Serious: Yes (Other)
  Sender: FDA-Public Use
  Company Number: US-ORGANON-O2111USA002175

PATIENT
  Age: 28 Year
  Sex: Female
  Weight: 57.596 kg

DRUGS (2)
  1. NEXPLANON [Suspect]
     Active Substance: ETONOGESTREL
     Dosage: 1 IMPLANT, EVERY THREE YEAR
     Route: 059
     Dates: start: 201612, end: 20210618
  2. NEXPLANON [Suspect]
     Active Substance: ETONOGESTREL
     Dosage: 1 IMPLANT, EVERY THREE YEAR
     Route: 059
     Dates: start: 20210618, end: 20211015

REACTIONS (9)
  - Surgery [Unknown]
  - Complication associated with device [Recovered/Resolved]
  - Hypoaesthesia [Recovered/Resolved with Sequelae]
  - Implant site scar [Unknown]
  - Device placement issue [Recovered/Resolved]
  - Device issue [Recovered/Resolved]
  - Complication of device removal [Recovered/Resolved]
  - Complication of device removal [Recovered/Resolved]
  - Incorrect product administration duration [Unknown]

NARRATIVE: CASE EVENT DATE: 20191201
